FAERS Safety Report 16084080 (Version 6)
Quarter: 2019Q2

REPORT INFORMATION
  Report Type: Spontaneous
  Country: US (occurrence: US)
  Receive Date: 20190318
  Receipt Date: 20190607
  Transmission Date: 20190711
  Serious: Yes (Other)
  Sender: FDA-Public Use
  Company Number: US-PFIZER INC-2019109435

PATIENT
  Age: 51 Year
  Sex: Female
  Weight: 82 kg

DRUGS (8)
  1. LYRICA [Suspect]
     Active Substance: PREGABALIN
     Dosage: 50 MG, 4X/DAY
     Route: 048
     Dates: start: 2018
  2. LYRICA CR [Suspect]
     Active Substance: PREGABALIN
     Indication: FIBROMYALGIA
  3. LYRICA [Suspect]
     Active Substance: PREGABALIN
     Indication: PAIN
     Dosage: 50 MG, UNK
     Route: 048
  4. LYRICA [Suspect]
     Active Substance: PREGABALIN
     Dosage: 100 MG, UNK
     Route: 048
  5. OXYCODONE [Concomitant]
     Active Substance: OXYCODONE
     Indication: PAIN
     Dosage: 10 MG, 4X/DAY
     Route: 048
     Dates: start: 2015
  6. LYRICA CR [Suspect]
     Active Substance: PREGABALIN
     Indication: PAIN
     Dosage: 200 MG, 3X/DAY, (GIVEN SAMPLES OF 165MG AND SAMPLES OF 25MG)
  7. LYRICA [Suspect]
     Active Substance: PREGABALIN
     Indication: FIBROMYALGIA
     Dosage: 75 MG, UNK
     Route: 048
  8. LYRICA [Suspect]
     Active Substance: PREGABALIN
     Dosage: 200 MG, 3X/DAY
     Route: 048
     Dates: end: 201901

REACTIONS (18)
  - Off label use [Unknown]
  - Insomnia [Recovered/Resolved]
  - Blood potassium decreased [Unknown]
  - Vomiting [Recovered/Resolved]
  - Headache [Unknown]
  - Malaise [Unknown]
  - Product use issue [Unknown]
  - Chills [Unknown]
  - Withdrawal syndrome [Unknown]
  - Tremor [Recovered/Resolved]
  - Diarrhoea [Recovered/Resolved]
  - Abdominal pain upper [Unknown]
  - Ill-defined disorder [Unknown]
  - Dependence [Unknown]
  - Drug ineffective [Unknown]
  - Nausea [Recovered/Resolved]
  - Impaired work ability [Unknown]
  - Hot flush [Recovered/Resolved]

NARRATIVE: CASE EVENT DATE: 2018
